FAERS Safety Report 15297171 (Version 4)
Quarter: 2019Q2

REPORT INFORMATION
  Report Type: Spontaneous
  Country: US (occurrence: US)
  Receive Date: 20180820
  Receipt Date: 20190530
  Transmission Date: 20190711
  Serious: Yes (Hospitalization, Other)
  Sender: FDA-Public Use
  Company Number: US-PFIZER INC-2016266481

PATIENT
  Age: 70 Year
  Sex: Female
  Weight: 58 kg

DRUGS (3)
  1. EFFEXOR XR [Suspect]
     Active Substance: VENLAFAXINE HYDROCHLORIDE
     Dosage: 225 MG, DAILY [75 MG (1 TAB AM 2 TAB PM DAILY)]
  2. EFFEXOR XR [Suspect]
     Active Substance: VENLAFAXINE HYDROCHLORIDE
     Indication: NEUROPATHY PERIPHERAL
     Dosage: 75 MG, 3X/DAY
     Route: 048
  3. EFFEXOR XR [Suspect]
     Active Substance: VENLAFAXINE HYDROCHLORIDE
     Indication: DEPRESSION
     Dosage: 150 MG, 2X/DAY
     Route: 048

REACTIONS (9)
  - Cataract [Unknown]
  - Off label use [Unknown]
  - Pre-existing condition improved [Unknown]
  - Product use issue [Unknown]
  - Prescribed overdose [Unknown]
  - Vision blurred [Unknown]
  - Anxiety [Unknown]
  - Suicidal ideation [Recovered/Resolved]
  - Therapeutic response unexpected [Unknown]

NARRATIVE: CASE EVENT DATE: 2018
